FAERS Safety Report 20771801 (Version 1)
Quarter: 2022Q2

REPORT INFORMATION
  Report Type: Spontaneous
  Country: BG (occurrence: BG)
  Receive Date: 20220430
  Receipt Date: 20220430
  Transmission Date: 20220720
  Serious: Yes (Other)
  Sender: FDA-Public Use
  Company Number: BG-TEVA-2022-BG-2031353

PATIENT
  Age: 31 Year
  Sex: Male

DRUGS (1)
  1. PENICILLAMINE [Suspect]
     Active Substance: PENICILLAMINE
     Indication: Hepato-lenticular degeneration
     Dosage: 1.5 GRAM DAILY;
     Route: 065

REACTIONS (1)
  - Nephrotic syndrome [Recovering/Resolving]
